FAERS Safety Report 10921113 (Version 4)
Quarter: 2015Q3

REPORT INFORMATION
  Report Type: Spontaneous
  Country: JP (occurrence: JP)
  Receive Date: 20150317
  Receipt Date: 20150722
  Transmission Date: 20151125
  Serious: Yes (Other)
  Sender: FDA-Public Use
  Company Number: JP-PFIZER INC-2014342277

PATIENT
  Age: 46 Year
  Sex: Female
  Weight: 75 kg

DRUGS (11)
  1. WARFARIN [Interacting]
     Active Substance: WARFARIN
     Dosage: 5.5 MG, 1X/DAY
     Route: 048
     Dates: start: 20141007, end: 20141208
  2. WARFARIN [Interacting]
     Active Substance: WARFARIN
     Dosage: 6 MG, 1X/DAY
     Route: 048
     Dates: start: 20141209
  3. METHYCOBAL [Concomitant]
     Active Substance: METHYLCOBALAMIN
  4. LOXOPROFEN [Concomitant]
     Active Substance: LOXOPROFEN
     Dosage: UNK, AS NEEDED
  5. PARIET [Concomitant]
     Active Substance: RABEPRAZOLE SODIUM
  6. LYRICA [Interacting]
     Active Substance: PREGABALIN
     Dosage: 75 MG, 1X/DAY AT BEDTIME
     Route: 048
     Dates: start: 20140729, end: 20141016
  7. WARFARIN [Interacting]
     Active Substance: WARFARIN
     Dosage: 4.75 MG, 1X/DAY
     Route: 048
     Dates: end: 20140922
  8. LYRICA [Interacting]
     Active Substance: PREGABALIN
     Dosage: 100 MG/DAY (25 MG IN THE MORNING AND 75 MG IN THE EVENING)
     Route: 048
     Dates: start: 20141017, end: 20141211
  9. LYRICA [Interacting]
     Active Substance: PREGABALIN
     Dosage: 75 MG, 1X/DAY
     Route: 048
     Dates: start: 20141212, end: 20141219
  10. LYRICA [Suspect]
     Active Substance: PREGABALIN
     Indication: HYPOAESTHESIA
     Dosage: 50 MG, 1X/DAY AT BEDTIME
     Route: 048
     Dates: start: 20140722, end: 20140728
  11. WARFARIN [Interacting]
     Active Substance: WARFARIN
     Dosage: 5 MG, 1X/DAY
     Route: 048
     Dates: start: 20140923, end: 20141006

REACTIONS (2)
  - Drug interaction [Unknown]
  - International normalised ratio decreased [Recovered/Resolved]

NARRATIVE: CASE EVENT DATE: 20141212
